FAERS Safety Report 5489576-3 (Version None)
Quarter: 2007Q4

REPORT INFORMATION
  Report Type: 
  Country: None (occurrence: None)
  Receive Date: 20071016
  Receipt Date: 20071016
  Transmission Date: 20080405
  Serious: Yes (Congenital Anomaly)
  Sender: FDA-Public Use
  Company Number: None

PATIENT
  Age: 35 Year
  Sex: Female
  Weight: 69.8539 kg

DRUGS (1)
  1. LOVENOX [Suspect]
     Indication: PROTEIN S DEFICIENCY
     Dosage: 30 ML  1X A DAY  SQ
     Route: 058
     Dates: start: 20060405, end: 20070115

REACTIONS (2)
  - DRUG EXPOSURE DURING PREGNANCY [None]
  - PULMONARY VALVE STENOSIS CONGENITAL [None]
